FAERS Safety Report 11765861 (Version 1)
Quarter: 2015Q4

REPORT INFORMATION
  Report Type: Spontaneous
  Country: CN (occurrence: CN)
  Receive Date: 20151122
  Receipt Date: 20151122
  Transmission Date: 20160304
  Serious: Yes (Other)
  Sender: FDA-Public Use
  Company Number: CN-009507513-1511CHN009780

PATIENT
  Age: 70 Year
  Sex: Female

DRUGS (2)
  1. SINEMET [Suspect]
     Active Substance: CARBIDOPA\LEVODOPA
     Indication: PARKINSON^S DISEASE
     Dosage: 1 TABLET PER DAY
     Route: 048
  2. SINEMET [Suspect]
     Active Substance: CARBIDOPA\LEVODOPA
     Dosage: 10 TABLETS ONETIME
     Route: 048
     Dates: start: 20151116, end: 20151116

REACTIONS (2)
  - Prescribed overdose [Unknown]
  - Aphasia [Unknown]

NARRATIVE: CASE EVENT DATE: 20151116
